FAERS Safety Report 12546247 (Version 1)
Quarter: 2016Q3

REPORT INFORMATION
  Report Type: Spontaneous
  Country: US (occurrence: US)
  Receive Date: 20160711
  Receipt Date: 20160711
  Transmission Date: 20161109
  Serious: Yes (Other)
  Sender: FDA-Public Use
  Company Number: US-TEVA-674863USA

PATIENT
  Age: 49 Year
  Sex: Female

DRUGS (2)
  1. ZECUITY [Suspect]
     Active Substance: SUMATRIPTAN SUCCINATE
     Indication: MIGRAINE
     Route: 062
     Dates: start: 20160701, end: 20160701
  2. GABAPENTIN. [Concomitant]
     Active Substance: GABAPENTIN
     Indication: NEURALGIA
     Dosage: UNKNOWN FORM STRENGTH

REACTIONS (8)
  - Application site pruritus [Recovered/Resolved]
  - Product physical issue [Unknown]
  - Application site inflammation [Not Recovered/Not Resolved]
  - Application site vesicles [Not Recovered/Not Resolved]
  - Product leakage [Unknown]
  - Drug ineffective [Unknown]
  - Application site burn [Recovering/Resolving]
  - Application site discolouration [Unknown]

NARRATIVE: CASE EVENT DATE: 20160701
